FAERS Safety Report 24404610 (Version 1)
Quarter: 2024Q4

REPORT INFORMATION
  Report Type: Spontaneous
  Country: CN (occurrence: CN)
  Receive Date: 20241007
  Receipt Date: 20241007
  Transmission Date: 20250114
  Serious: No
  Sender: ROCHE
  Company Number: CN-ROCHE-3514372

PATIENT
  Age: 81 Year
  Sex: Male

DRUGS (7)
  1. GAZYVA [Suspect]
     Active Substance: OBINUTUZUMAB
     Indication: Follicular lymphoma
     Dosage: OBINUTUZUMAB + BENDAMUSTINE
     Route: 042
  2. POLIVY [Suspect]
     Active Substance: POLATUZUMAB VEDOTIN-PIIQ
     Indication: Diffuse large B-cell lymphoma
     Dosage: POLATUZUMAB VEDOTIN, RITUXIMAB, CYCLOPHOSPHAMIDE, DOXORUBICIN, PREDNISONE
     Route: 065
     Dates: start: 20230924
  3. MABTHERA [Suspect]
     Active Substance: RITUXIMAB
     Indication: Diffuse large B-cell lymphoma
     Dosage: POLATUZUMAB VEDOTIN, RITUXIMAB, CYCLOPHOSPHAMIDE, DOXORUBICIN, PREDNISONE
     Route: 065
     Dates: start: 20230924
  4. CYCLOPHOSPHAMIDE [Concomitant]
     Active Substance: CYCLOPHOSPHAMIDE
     Indication: Diffuse large B-cell lymphoma
     Dosage: POLATUZUMAB VEDOTIN, RITUXIMAB, CYCLOPHOSPHAMIDE, DOXORUBICIN, PREDNISONE
     Dates: start: 20230924
  5. DOXORUBICIN [Concomitant]
     Active Substance: DOXORUBICIN
     Indication: Diffuse large B-cell lymphoma
     Dosage: POLATUZUMAB VEDOTIN, RITUXIMAB, CYCLOPHOSPHAMIDE, DOXORUBICIN, PREDNISONE
     Dates: start: 20230924
  6. PREDNISONE [Concomitant]
     Active Substance: PREDNISONE
     Indication: Diffuse large B-cell lymphoma
     Dosage: POLATUZUMAB VEDOTIN, RITUXIMAB, CYCLOPHOSPHAMIDE, DOXORUBICIN, PREDNISONE
     Dates: start: 20230924
  7. TREANDA [Concomitant]
     Active Substance: BENDAMUSTINE HYDROCHLORIDE
     Indication: Follicular lymphoma

REACTIONS (2)
  - Myelosuppression [Unknown]
  - Ureteral neoplasm [Unknown]
